FAERS Safety Report 5334611-6 (Version None)
Quarter: 2007Q2

REPORT INFORMATION
  Report Type: 
  Country: None (occurrence: None)
  Receive Date: 20070525
  Receipt Date: 20070521
  Transmission Date: 20071010
  Serious: Yes (Death)
  Sender: FDA-Public Use
  Company Number: FR-GENENTECH-235061

PATIENT
  Age: 67 Year
  Sex: Male

DRUGS (5)
  1. MABTHERA [Suspect]
     Indication: LYMPHOMA
  2. CYCLOPHOSPHAMIDE [Concomitant]
     Indication: LYMPHOMA
  3. DOXORUBICIN [Concomitant]
     Indication: LYMPHOMA
  4. ONCOVIN [Concomitant]
     Indication: LYMPHOMA
  5. PREDNISOLONE [Concomitant]
     Indication: LYMPHOMA

REACTIONS (1)
  - HEPATITIS FULMINANT [None]
